FAERS Safety Report 17569256 (Version 1)
Quarter: 2020Q1

REPORT INFORMATION
  Report Type: Spontaneous
  Country: US (occurrence: US)
  Receive Date: 20200322
  Receipt Date: 20200322
  Transmission Date: 20200409
  Serious: No
  Sender: FDA-Public Use
  Company Number: US-009507513-2003USA003414

PATIENT
  Sex: Female
  Weight: 99.77 kg

DRUGS (2)
  1. VITAMINS (UNSPECIFIED) [Concomitant]
     Active Substance: VITAMINS
  2. NEXPLANON [Suspect]
     Active Substance: ETONOGESTREL
     Indication: HORMONE LEVEL ABNORMAL
     Dosage: 1 DOSAGE FORM (68 MILLIGRAM)
     Route: 059
     Dates: start: 201601

REACTIONS (9)
  - Incorrect product administration duration [Unknown]
  - Polycystic ovaries [Not Recovered/Not Resolved]
  - Depression [Not Recovered/Not Resolved]
  - Product prescribing issue [Unknown]
  - Drug effective for unapproved indication [Unknown]
  - Therapeutic response unexpected [Unknown]
  - Product use in unapproved indication [Unknown]
  - Weight decreased [Not Recovered/Not Resolved]
  - Therapeutic response shortened [Not Recovered/Not Resolved]

NARRATIVE: CASE EVENT DATE: 2016
